FAERS Safety Report 25067095 (Version 1)
Quarter: 2025Q1

REPORT INFORMATION
  Report Type: Report from Study
  Country: US (occurrence: US)
  Receive Date: 20250312
  Receipt Date: 20250312
  Transmission Date: 20250409
  Serious: Yes (Other)
  Sender: ABBVIE
  Company Number: US-ABBVIE-6168030

PATIENT
  Age: 65 Year
  Sex: Female

DRUGS (1)
  1. RINVOQ [Suspect]
     Active Substance: UPADACITINIB
     Indication: Product used for unknown indication
     Route: 048
     Dates: start: 202309

REACTIONS (3)
  - Retinal artery occlusion [Recovering/Resolving]
  - Retinal artery embolism [Unknown]
  - Aneurysm [Recovering/Resolving]

NARRATIVE: CASE EVENT DATE: 20241001
